FAERS Safety Report 9986810 (Version 1)
Quarter: 2014Q1

REPORT INFORMATION
  Report Type: Report from Study
  Country: US (occurrence: US)
  Receive Date: 20140307
  Receipt Date: 20140307
  Transmission Date: 20141002
  Serious: No
  Sender: FDA-Public Use
  Company Number: US-ABBVIE-13P-163-1080356-00

PATIENT
  Age: 47 Year
  Sex: Female

DRUGS (6)
  1. HUMIRA [Suspect]
     Indication: ANKYLOSING SPONDYLITIS
     Dates: start: 201103, end: 201210
  2. HUMIRA [Suspect]
     Dates: start: 201210
  3. LISINOPRIL [Concomitant]
     Indication: BLOOD PRESSURE ABNORMAL
     Dosage: 5 MG DAILY
  4. MULTIVITAMIN [Concomitant]
     Indication: VITAMIN SUPPLEMENTATION
     Dosage: DAILY
  5. OMEGA 3 [Concomitant]
     Indication: MINERAL SUPPLEMENTATION
     Dosage: DAILY
  6. PROBIOTIC [Concomitant]
     Indication: PRODUCT USED FOR UNKNOWN INDICATION
     Dosage: DAILY

REACTIONS (6)
  - Haemorrhoids [Unknown]
  - Tooth disorder [Unknown]
  - Dermatitis [Unknown]
  - Fungal infection [Unknown]
  - Sinusitis [Unknown]
  - Nasopharyngitis [Unknown]
